FAERS Safety Report 5758838-4 (Version None)
Quarter: 2008Q2

REPORT INFORMATION
  Report Type: 
  Country: None (occurrence: None)
  Receive Date: 20080604
  Receipt Date: 20080602
  Transmission Date: 20081010
  Serious: Yes (Hospitalization)
  Sender: FDA-Public Use
  Company Number: CN-ASTRAZENECA-2008AP02833

PATIENT
  Age: 56 Year
  Sex: Female

DRUGS (6)
  1. NEXIUM [Suspect]
     Indication: GASTRITIS
     Route: 048
     Dates: start: 20080326, end: 20080407
  2. NEXIUM [Suspect]
     Indication: GASTROOESOPHAGEAL REFLUX DISEASE
     Route: 048
     Dates: start: 20080326, end: 20080407
  3. DOMPERIDONE [Suspect]
     Indication: GASTRITIS
     Route: 048
  4. DOMPERIDONE [Suspect]
     Indication: GASTROOESOPHAGEAL REFLUX DISEASE
     Route: 048
  5. GEFARNATE [Suspect]
     Indication: GASTRITIS
     Route: 048
  6. GEFARNATE [Suspect]
     Indication: GASTROOESOPHAGEAL REFLUX DISEASE
     Route: 048

REACTIONS (1)
  - MENTAL DISORDER [None]
